FAERS Safety Report 20143149 (Version 1)
Quarter: 2021Q4

REPORT INFORMATION
  Report Type: Report from Study
  Country: US (occurrence: None)
  Receive Date: 20211203
  Receipt Date: 20211203
  Transmission Date: 20220304
  Serious: Yes (Death)
  Sender: FDA-Public Use
  Company Number: 2021A848475

PATIENT
  Age: 30077 Day
  Sex: Female

DRUGS (21)
  1. TAGRISSO [Suspect]
     Active Substance: OSIMERTINIB
     Indication: Non-small cell lung cancer
     Route: 048
     Dates: start: 20210824
  2. ZYRTEC [Concomitant]
     Active Substance: CETIRIZINE HYDROCHLORIDE
  3. LIPITOR [Concomitant]
     Active Substance: ATORVASTATIN CALCIUM
  4. COLACE [Concomitant]
     Active Substance: DOCUSATE SODIUM
  5. DIGOXIN [Concomitant]
     Active Substance: DIGOXIN
  6. ADVAIR HFA [Concomitant]
     Active Substance: FLUTICASONE PROPIONATE\SALMETEROL XINAFOATE
  7. MUCINEX [Concomitant]
     Active Substance: GUAIFENESIN
  8. BENADRYL [Concomitant]
     Active Substance: DIPHENHYDRAMINE HYDROCHLORIDE
  9. ALBUTEROL [Concomitant]
     Active Substance: ALBUTEROL
  10. TYLENOL [Concomitant]
     Active Substance: ACETAMINOPHEN
  11. LINZESS [Concomitant]
     Active Substance: LINACLOTIDE
  12. FOLIC ACID [Concomitant]
     Active Substance: FOLIC ACID
  13. DILTIAZEM [Concomitant]
     Active Substance: DILTIAZEM
  14. FIBER CAPS [Concomitant]
     Active Substance: CALCIUM POLYCARBOPHIL
  15. LASIX [Concomitant]
     Active Substance: FUROSEMIDE
  16. VITAMIN B12 [Concomitant]
     Active Substance: CYANOCOBALAMIN
  17. VITAMINS [Concomitant]
     Active Substance: VITAMINS
  18. XARELTO [Concomitant]
     Active Substance: RIVAROXABAN
  19. VITAMIN D2 [Concomitant]
     Active Substance: ERGOCALCIFEROL
  20. ACTOS [Concomitant]
     Active Substance: PIOGLITAZONE HYDROCHLORIDE
  21. DIETARY SUPPLEMENT [Concomitant]
     Active Substance: DIETARY SUPPLEMENT

REACTIONS (1)
  - Death [Fatal]

NARRATIVE: CASE EVENT DATE: 20211127
